FAERS Safety Report 17483458 (Version 1)
Quarter: 2020Q1

REPORT INFORMATION
  Report Type: Spontaneous
  Country: US (occurrence: US)
  Receive Date: 20200302
  Receipt Date: 20200302
  Transmission Date: 20200409
  Serious: Yes (Hospitalization)
  Sender: FDA-Public Use
  Company Number: US-PROCTER+GAMBLE-GS20019990

PATIENT
  Age: 35 Year
  Sex: Male

DRUGS (1)
  1. CALCIUM CARBONATE, UNSPECIFIED [Suspect]
     Active Substance: CALCIUM CARBONATE
     Indication: GASTROOESOPHAGEAL REFLUX DISEASE
     Dosage: 7-8 TABLETS
     Route: 048

REACTIONS (20)
  - Decreased appetite [Recovering/Resolving]
  - Pollakiuria [Recovering/Resolving]
  - Abdominal pain upper [Recovering/Resolving]
  - Blood bicarbonate increased [Recovering/Resolving]
  - Blood parathyroid hormone decreased [Recovering/Resolving]
  - Vomiting [Recovering/Resolving]
  - Abdominal tenderness [Recovering/Resolving]
  - Blood urea increased [Recovering/Resolving]
  - Pancreatitis [Recovering/Resolving]
  - Nausea [Recovering/Resolving]
  - White blood cell count increased [Recovering/Resolving]
  - Blood alkaline phosphatase increased [Recovering/Resolving]
  - Back pain [Recovering/Resolving]
  - Fatigue [Recovering/Resolving]
  - Confusional state [Recovering/Resolving]
  - Dry skin [Recovering/Resolving]
  - Blood creatinine increased [Recovering/Resolving]
  - Blood calcium increased [Recovering/Resolving]
  - Blood 25-hydroxycholecalciferol decreased [Recovering/Resolving]
  - Lipase increased [Recovering/Resolving]
